FAERS Safety Report 10970124 (Version 2)
Quarter: 2015Q2

REPORT INFORMATION
  Report Type: Spontaneous
  Country: US (occurrence: None)
  Receive Date: 20150327
  Receipt Date: 20150415
  Transmission Date: 20150821
  Serious: Yes (Hospitalization)
  Sender: FDA-Public Use
  Company Number: 15AE013

PATIENT
  Age: 17 Month
  Sex: Female

DRUGS (1)
  1. CVS ACETAMINOPHEN 500 MG RAPID RELEASE GEL CAPS [Suspect]
     Active Substance: ACETAMINOPHEN

REACTIONS (1)
  - Failure of child resistant mechanism for pharmaceutical product [None]

NARRATIVE: CASE EVENT DATE: 20150316
